FAERS Safety Report 7588661-X (Version None)
Quarter: 2011Q3

REPORT INFORMATION
  Report Type: 
  Country: None (occurrence: None)
  Receive Date: 20110705
  Receipt Date: 20110705
  Transmission Date: 20111222
  Serious: No
  Sender: FDA-Public Use
  Company Number: None

PATIENT
  Age: 71 Year
  Sex: Male
  Weight: 65.77 kg

DRUGS (2)
  1. GABAPENTIN [Concomitant]
     Route: 048
  2. MORPHINE SULFATE [Suspect]
     Indication: RADICULAR PAIN
     Dosage: 30 MG
     Route: 048
     Dates: start: 20110525, end: 20110529

REACTIONS (3)
  - PRODUCT SUBSTITUTION ISSUE [None]
  - PRODUCT QUALITY ISSUE [None]
  - NAUSEA [None]
